FAERS Safety Report 24949736 (Version 1)
Quarter: 2025Q1

REPORT INFORMATION
  Report Type: Spontaneous
  Country: US (occurrence: None)
  Receive Date: 20250209
  Receipt Date: 20250209
  Transmission Date: 20250408
  Serious: Yes (Life-Threatening, Disabling)
  Sender: FDA-CTU
  Company Number: None

PATIENT
  Sex: Female
  Weight: 42.75 kg

DRUGS (2)
  1. LEVOFLOXACIN [Suspect]
     Active Substance: LEVOFLOXACIN
     Indication: Urinary tract infection
     Dosage: 1 TABLET DAILY ORAL
     Route: 048
     Dates: start: 20150923, end: 20150929
  2. METOPROLOL [Concomitant]
     Active Substance: METOPROLOL

REACTIONS (14)
  - Feeling hot [None]
  - Hypotonia [None]
  - Tinnitus [None]
  - Vertigo [None]
  - Blood pressure increased [None]
  - Palpitations [None]
  - Sleep disorder [None]
  - Tremor [None]
  - Personality change [None]
  - Social problem [None]
  - Quality of life decreased [None]
  - Nervous system disorder [None]
  - Thyroid mass [None]
  - Toxicity to various agents [None]
